FAERS Safety Report 9265962 (Version 1)
Quarter: 2013Q2

REPORT INFORMATION
  Report Type: Spontaneous
  Country: US (occurrence: US)
  Receive Date: 20130501
  Receipt Date: 20130501
  Transmission Date: 20140414
  Serious: Yes (Disabling, Other)
  Sender: FDA-Public Use
  Company Number: US-ACTAVIS-2013-07204

PATIENT
  Age: 62 Year
  Sex: Female

DRUGS (3)
  1. DEXTROAMPHETAMINE SULFATE (AELLC) [Suspect]
     Indication: ATTENTION DEFICIT/HYPERACTIVITY DISORDER
     Dosage: 30 MG, DAILY
     Route: 048
     Dates: end: 20130404
  2. DEXTROAMPHETAMINE SULFATE (AELLC) [Suspect]
     Dosage: 20 MG, DAILY
     Route: 048
  3. DEXTROAMPHETAMINE SULFATE (AELLC) [Suspect]
     Dosage: 10 MG, DAILY
     Route: 048
     Dates: start: 201303

REACTIONS (6)
  - Amnesia [Not Recovered/Not Resolved]
  - Disability [Not Recovered/Not Resolved]
  - Somnolence [Unknown]
  - Feeling abnormal [Not Recovered/Not Resolved]
  - Drug ineffective [Not Recovered/Not Resolved]
  - Product quality issue [None]
